FAERS Safety Report 8085880-3 (Version None)
Quarter: 2012Q1

REPORT INFORMATION
  Report Type: 
  Country: None (occurrence: None)
  Receive Date: 20120128
  Receipt Date: 20110415
  Transmission Date: 20120608
  Serious: No
  Sender: FDA-Public Use
  Company Number: US-ABBOTT-11P-163-0720542-00

PATIENT
  Sex: Female

DRUGS (4)
  1. MERCAPTOPURINE [Concomitant]
     Indication: CROHN'S DISEASE
  2. FLAGYL [Concomitant]
     Indication: CROHN'S DISEASE
  3. HUMIRA [Suspect]
     Indication: CROHN'S DISEASE
     Dates: start: 20090101, end: 20100801
  4. HUMIRA [Suspect]
     Dates: start: 20100801

REACTIONS (4)
  - OEDEMA PERIPHERAL [None]
  - PNEUMONIA [None]
  - DYSPNOEA [None]
  - JOINT SWELLING [None]
